FAERS Safety Report 8855063 (Version 3)
Quarter: 2013Q2

REPORT INFORMATION
  Report Type: Spontaneous
  Country: US (occurrence: US)
  Receive Date: 20121023
  Receipt Date: 20130419
  Transmission Date: 20140414
  Serious: Yes (Hospitalization)
  Sender: FDA-Public Use
  Company Number: US-BAYER-2012-108290

PATIENT
  Age: 25 Year
  Sex: Female
  Weight: 90.7 kg

DRUGS (5)
  1. YASMIN [Suspect]
     Indication: CONTRACEPTION
     Dosage: UNK
     Dates: start: 2006
  2. YAZ [Suspect]
     Indication: CONTRACEPTION
     Dosage: UNK
     Dates: start: 2006, end: 2007
  3. YAZ [Suspect]
     Indication: CONTRACEPTION
     Dosage: UNK
     Dates: start: 2008, end: 2008
  4. ALBUTEROL [Concomitant]
     Indication: ASTHMA
     Dosage: UNK
     Dates: start: 1990
  5. TYLENOL #3 [Concomitant]

REACTIONS (7)
  - Cerebrovascular accident [None]
  - Transverse sinus thrombosis [Recovered/Resolved]
  - Cavernous sinus thrombosis [Recovered/Resolved]
  - Injury [None]
  - Emotional distress [None]
  - Pain [None]
  - Pain [None]
